FAERS Safety Report 4510582-7 (Version None)
Quarter: 2004Q4

REPORT INFORMATION
  Report Type: 
  Country: None (occurrence: None)
  Receive Date: 20041119
  Receipt Date: 20041105
  Transmission Date: 20050328
  Serious: Yes (Other)
  Sender: FDA-Public Use
  Company Number: 2004-NL-00169NL

PATIENT
  Sex: Male

DRUGS (1)
  1. COMBIVENT [Suspect]
     Dosage: (140 MCG) ,IH
     Route: 055

REACTIONS (2)
  - BLAST INJURY [None]
  - THERMAL BURN [None]
